FAERS Safety Report 13753995 (Version 1)
Quarter: 2017Q3

REPORT INFORMATION
  Report Type: Spontaneous
  Country: US (occurrence: US)
  Receive Date: 20170713
  Receipt Date: 20170713
  Transmission Date: 20171127
  Serious: Yes (Hospitalization, Other)
  Sender: FDA-Public Use
  Company Number: US-ASTRAZENECA-2012BM07759

PATIENT
  Age: 72 Year
  Sex: Male
  Weight: 78.5 kg

DRUGS (18)
  1. BYETTA [Suspect]
     Active Substance: EXENATIDE
     Indication: TYPE 2 DIABETES MELLITUS
     Route: 058
     Dates: start: 20050613, end: 20050702
  2. LANTUS [Concomitant]
     Active Substance: INSULIN GLARGINE
     Indication: DIABETES MELLITUS
     Dosage: DAILY
     Route: 058
     Dates: end: 2005
  3. FORTAMET [Concomitant]
     Active Substance: METFORMIN HYDROCHLORIDE
     Dates: start: 2005
  4. METFORMIN [Concomitant]
     Active Substance: METFORMIN HYDROCHLORIDE
     Indication: ADJUVANT THERAPY
     Route: 048
  5. CYMBALTA [Concomitant]
     Active Substance: DULOXETINE HYDROCHLORIDE
     Dosage: UNK
  6. METFORMIN [Concomitant]
     Active Substance: METFORMIN HYDROCHLORIDE
     Indication: TYPE 2 DIABETES MELLITUS
     Route: 048
  7. AMARYL [Concomitant]
     Active Substance: GLIMEPIRIDE
     Indication: TYPE 2 DIABETES MELLITUS
     Route: 048
  8. PLAVIX [Concomitant]
     Active Substance: CLOPIDOGREL BISULFATE
     Indication: CARDIAC DISORDER
     Dosage: 75 MG, QD
     Route: 048
     Dates: start: 20120412
  9. ASPIRIN. [Concomitant]
     Active Substance: ASPIRIN
     Route: 048
     Dates: start: 2012
  10. DIOVAN [Concomitant]
     Active Substance: VALSARTAN
     Route: 048
  11. BYETTA [Suspect]
     Active Substance: EXENATIDE
     Indication: TYPE 2 DIABETES MELLITUS
     Route: 058
     Dates: start: 20050713, end: 2012
  12. EXENATIDE. [Suspect]
     Active Substance: EXENATIDE
     Indication: TYPE 2 DIABETES MELLITUS
     Route: 058
     Dates: start: 20120215
  13. LISINOPRIL. [Concomitant]
     Active Substance: LISINOPRIL
     Indication: HYPERTENSION
     Route: 048
  14. AVANDAMET [Concomitant]
     Active Substance: METFORMIN HYDROCHLORIDE\ROSIGLITAZONE MALEATE
     Indication: DIABETES MELLITUS
     Dosage: UNK
  15. ATORVASTATIN CALCIUM. [Concomitant]
     Active Substance: ATORVASTATIN CALCIUM
     Indication: BLOOD CHOLESTEROL ABNORMAL
     Route: 048
  16. LOSARTAN. [Concomitant]
     Active Substance: LOSARTAN
     Indication: BLOOD PRESSURE ABNORMAL
     Route: 048
  17. BYETTA [Suspect]
     Active Substance: EXENATIDE
     Indication: TYPE 2 DIABETES MELLITUS
     Dosage: ONCE DAILY
     Route: 058
     Dates: start: 2005
  18. FLOMAX [Concomitant]
     Active Substance: TAMSULOSIN HYDROCHLORIDE
     Indication: BLOOD CHOLESTEROL ABNORMAL
     Route: 048

REACTIONS (31)
  - Arterial occlusive disease [Unknown]
  - Chronic kidney disease [Not Recovered/Not Resolved]
  - Injection site swelling [Unknown]
  - Intentional product misuse [Not Recovered/Not Resolved]
  - Product physical consistency issue [Unknown]
  - Sneezing [Unknown]
  - Fatigue [Unknown]
  - Decreased appetite [Unknown]
  - Diarrhoea [Not Recovered/Not Resolved]
  - Device difficult to use [Unknown]
  - Aortic valve disease [Not Recovered/Not Resolved]
  - Feeling cold [Unknown]
  - Off label use [Unknown]
  - Weight increased [Unknown]
  - Nausea [Unknown]
  - Dyspepsia [Not Recovered/Not Resolved]
  - Therapeutic response unexpected [Unknown]
  - Injection site nodule [Recovering/Resolving]
  - Lacrimation increased [Unknown]
  - Weight decreased [Recovered/Resolved]
  - Somnolence [Not Recovered/Not Resolved]
  - Eructation [Not Recovered/Not Resolved]
  - Headache [Unknown]
  - Abdominal distension [Recovered/Resolved]
  - Product colour issue [Unknown]
  - Blood glucose fluctuation [Unknown]
  - Injection site pain [Recovered/Resolved]
  - Injection site induration [Not Recovered/Not Resolved]
  - Cardiac disorder [Not Recovered/Not Resolved]
  - Injection site haemorrhage [Not Recovered/Not Resolved]
  - Blood glucose decreased [Recovered/Resolved]

NARRATIVE: CASE EVENT DATE: 2005
